FAERS Safety Report 6993539-6 (Version None)
Quarter: 2010Q3

REPORT INFORMATION
  Report Type: 
  Country: None (occurrence: None)
  Receive Date: 20100917
  Receipt Date: 20100319
  Transmission Date: 20110219
  Serious: No
  Sender: FDA-Public Use
  Company Number: US-ASTRAZENECA-2010SE10739

PATIENT
  Age: 32 Year
  Sex: Male
  Weight: 72.6 kg

DRUGS (14)
  1. SEROQUEL [Suspect]
     Indication: MOOD SWINGS
     Route: 048
     Dates: end: 20080101
  2. SEROQUEL [Suspect]
     Indication: SLEEP DISORDER
     Route: 048
     Dates: end: 20080101
  3. SEROQUEL [Suspect]
     Indication: STRESS
     Route: 048
     Dates: end: 20080101
  4. SEROQUEL [Suspect]
     Route: 048
     Dates: start: 20080101, end: 20100208
  5. SEROQUEL [Suspect]
     Route: 048
     Dates: start: 20080101, end: 20100208
  6. SEROQUEL [Suspect]
     Route: 048
     Dates: start: 20080101, end: 20100208
  7. SEROQUEL [Suspect]
     Route: 048
     Dates: start: 20100208, end: 20100228
  8. SEROQUEL [Suspect]
     Route: 048
     Dates: start: 20100208, end: 20100228
  9. SEROQUEL [Suspect]
     Route: 048
     Dates: start: 20100208, end: 20100228
  10. SEROQUEL [Suspect]
     Route: 048
     Dates: start: 20100301, end: 20100301
  11. SEROQUEL [Suspect]
     Route: 048
     Dates: start: 20100301, end: 20100301
  12. SEROQUEL [Suspect]
     Route: 048
     Dates: start: 20100301, end: 20100301
  13. XANAX [Concomitant]
  14. KLONOPIN [Concomitant]
     Indication: STRESS
     Route: 048

REACTIONS (12)
  - ABDOMINAL PAIN UPPER [None]
  - AGGRESSION [None]
  - ANXIETY [None]
  - CONFUSIONAL STATE [None]
  - DECREASED APPETITE [None]
  - DRUG DOSE OMISSION [None]
  - INCREASED APPETITE [None]
  - INSOMNIA [None]
  - MOOD SWINGS [None]
  - SLEEP DISORDER [None]
  - WEIGHT DECREASED [None]
  - WEIGHT INCREASED [None]
